FAERS Safety Report 14559808 (Version 6)
Quarter: 2022Q2

REPORT INFORMATION
  Report Type: Report from Study
  Country: DE (occurrence: DE)
  Receive Date: 20180221
  Receipt Date: 20220426
  Transmission Date: 20220721
  Serious: Yes (Hospitalization, Other)
  Sender: FDA-Public Use
  Company Number: None

PATIENT
  Age: 79 Year
  Sex: Female
  Weight: 94 kg

DRUGS (49)
  1. NIVOLUMAB [Suspect]
     Active Substance: NIVOLUMAB
     Indication: Malignant melanoma
     Route: 065
     Dates: start: 20170221, end: 20170221
  2. NIVOLUMAB [Suspect]
     Active Substance: NIVOLUMAB
     Indication: Lung neoplasm malignant
     Route: 065
     Dates: start: 20170221, end: 20170912
  3. NIVOLUMAB [Suspect]
     Active Substance: NIVOLUMAB
     Route: 065
     Dates: start: 20171024, end: 20171024
  4. NIVOLUMAB [Suspect]
     Active Substance: NIVOLUMAB
     Route: 065
     Dates: start: 20171107, end: 20171107
  5. NIVOLUMAB [Suspect]
     Active Substance: NIVOLUMAB
     Route: 065
     Dates: start: 20171121, end: 20171121
  6. NIVOLUMAB [Suspect]
     Active Substance: NIVOLUMAB
     Route: 065
     Dates: start: 20170307, end: 20170307
  7. NIVOLUMAB [Suspect]
     Active Substance: NIVOLUMAB
     Route: 065
     Dates: start: 20170320, end: 20170320
  8. NIVOLUMAB [Suspect]
     Active Substance: NIVOLUMAB
     Route: 065
     Dates: start: 20170403, end: 20170403
  9. NIVOLUMAB [Suspect]
     Active Substance: NIVOLUMAB
     Route: 065
     Dates: start: 20170420, end: 20170420
  10. NIVOLUMAB [Suspect]
     Active Substance: NIVOLUMAB
     Route: 065
     Dates: start: 20170502, end: 20170502
  11. NIVOLUMAB [Suspect]
     Active Substance: NIVOLUMAB
     Route: 065
     Dates: start: 20170516, end: 20170516
  12. NIVOLUMAB [Suspect]
     Active Substance: NIVOLUMAB
     Route: 065
     Dates: start: 20170530
  13. NIVOLUMAB [Suspect]
     Active Substance: NIVOLUMAB
     Indication: Lung neoplasm malignant
     Route: 065
     Dates: start: 20170221, end: 20170912
  14. NIVOLUMAB [Suspect]
     Active Substance: NIVOLUMAB
     Route: 065
     Dates: start: 20171024, end: 20171024
  15. NIVOLUMAB [Suspect]
     Active Substance: NIVOLUMAB
     Route: 065
     Dates: start: 20171107, end: 20171107
  16. NIVOLUMAB [Suspect]
     Active Substance: NIVOLUMAB
     Route: 065
     Dates: start: 20171121, end: 20171121
  17. NIVOLUMAB [Suspect]
     Active Substance: NIVOLUMAB
     Route: 065
     Dates: start: 20170307, end: 20170307
  18. NIVOLUMAB [Suspect]
     Active Substance: NIVOLUMAB
     Route: 065
     Dates: start: 20170320, end: 20170320
  19. NIVOLUMAB [Suspect]
     Active Substance: NIVOLUMAB
     Route: 065
     Dates: start: 20170403, end: 20170403
  20. NIVOLUMAB [Suspect]
     Active Substance: NIVOLUMAB
     Route: 065
     Dates: start: 20170420, end: 20170420
  21. NIVOLUMAB [Suspect]
     Active Substance: NIVOLUMAB
     Route: 065
     Dates: start: 20170502, end: 20170502
  22. NIVOLUMAB [Suspect]
     Active Substance: NIVOLUMAB
     Route: 065
     Dates: start: 20170516, end: 20170516
  23. NIVOLUMAB [Suspect]
     Active Substance: NIVOLUMAB
     Route: 065
     Dates: start: 20170530
  24. ALIZAPRIDA [Concomitant]
     Indication: Prophylaxis
     Dosage: 50 MG, PRN
     Route: 048
     Dates: start: 20170307
  25. ACETAMINOPHEN [Concomitant]
     Active Substance: ACETAMINOPHEN
     Indication: Prophylaxis
     Dosage: 500 MG, PRN
     Route: 048
     Dates: start: 20170307
  26. VALSARTAN [Concomitant]
     Active Substance: VALSARTAN
     Indication: Product used for unknown indication
     Dosage: 80 MG, QD
     Route: 048
     Dates: start: 20160224
  27. PANTOPRAZOLE SODIUM [Concomitant]
     Active Substance: PANTOPRAZOLE SODIUM
     Indication: Prophylaxis
     Dosage: 40 MG, UNK
     Route: 048
     Dates: start: 20160224
  28. FOLIC ACID [Concomitant]
     Active Substance: FOLIC ACID
     Indication: Prophylaxis
     Dosage: 0.4 MG, UNK
     Route: 048
     Dates: start: 20160224
  29. TORSEMIDE [Concomitant]
     Active Substance: TORSEMIDE
     Indication: Product used for unknown indication
     Dosage: 10 MG, UNK
     Route: 048
     Dates: start: 20160509
  30. METAMIZOLE [Concomitant]
     Active Substance: METAMIZOLE
     Indication: Product used for unknown indication
     Dosage: 1000 MG, UNK
     Route: 048
     Dates: start: 20161025
  31. FLUTICASONE FUROATE\VILANTEROL TRIFENATATE [Concomitant]
     Active Substance: FLUTICASONE FUROATE\VILANTEROL TRIFENATATE
     Indication: Product used for unknown indication
     Dosage: 1 UNIT 1 UNIT, UNK
     Route: 050
     Dates: start: 20161212, end: 20170320
  32. SYMBICORT [Concomitant]
     Active Substance: BUDESONIDE\FORMOTEROL FUMARATE DIHYDRATE
     Indication: Product used for unknown indication
     Dosage: 1 UNIT 1 UNIT, UNK
     Route: 050
     Dates: start: 20170321, end: 20170821
  33. SYMBICORT [Concomitant]
     Active Substance: BUDESONIDE\FORMOTEROL FUMARATE DIHYDRATE
     Dosage: 1 UNK, UNK
     Route: 050
     Dates: start: 20170822
  34. SPIRIVA [Concomitant]
     Active Substance: TIOTROPIUM BROMIDE MONOHYDRATE
     Indication: Product used for unknown indication
     Dosage: 1 UNIT 1 UNIT 1 UNIT, UNK
     Route: 050
     Dates: start: 20161212, end: 20170821
  35. SPIRIVA [Concomitant]
     Active Substance: TIOTROPIUM BROMIDE MONOHYDRATE
     Dosage: 1 UNK, UNK
     Route: 050
     Dates: start: 20170822
  36. SODIUM PICOSULFATE [Concomitant]
     Active Substance: SODIUM PICOSULFATE
     Indication: Prophylaxis
     Dosage: 1 DF, QD
     Route: 048
     Dates: start: 20161212
  37. METOCLOPRAMID                      /00041901/ [Concomitant]
     Indication: Prophylaxis
     Dosage: 30 MG, UNK
     Route: 048
     Dates: start: 20170105
  38. TAVOR                              /00273201/ [Concomitant]
     Indication: Product used for unknown indication
     Dosage: 1 MG, PRN
     Route: 048
     Dates: start: 20160224
  39. IBUFLAM                            /00109201/ [Concomitant]
     Indication: Product used for unknown indication
     Dosage: 600 MG, PRN
     Route: 048
     Dates: start: 20160424
  40. POLYETHYLENE GLYCOLS [Concomitant]
     Active Substance: POLYETHYLENE GLYCOLS
     Indication: Prophylaxis
     Dosage: 1 DF, PRN
     Route: 048
     Dates: start: 20161215
  41. DIMENHYDRINATE [Concomitant]
     Active Substance: DIMENHYDRINATE
     Indication: Prophylaxis
     Dosage: 20 MG, PRN
     Route: 048
     Dates: start: 20161212
  42. ALBUTEROL [Concomitant]
     Active Substance: ALBUTEROL
     Indication: Product used for unknown indication
     Dosage: 1 DF, PRN
     Route: 065
     Dates: start: 20161212
  43. ROCEPHIN [Concomitant]
     Active Substance: CEFTRIAXONE SODIUM
     Indication: Bronchitis
     Dosage: 2 G, QD
     Route: 042
     Dates: start: 20171009, end: 20171011
  44. DEXAMETHASONE [Concomitant]
     Active Substance: DEXAMETHASONE
     Indication: Bronchitis
     Dosage: 4 MG, QD
     Route: 042
     Dates: start: 20171009, end: 20171011
  45. CEFUROXIME [Concomitant]
     Active Substance: CEFUROXIME
     Indication: Bronchitis
     Dosage: 1000 MG, QD
     Route: 048
     Dates: start: 20171012, end: 20171023
  46. CODEINE [Concomitant]
     Active Substance: CODEINE
     Indication: Bronchitis
     Dosage: 10 MG, UNK
     Route: 048
     Dates: start: 20171011
  47. MOXIFLOXACIN [Concomitant]
     Active Substance: MOXIFLOXACIN
     Indication: Bronchitis
     Dosage: 800 MG, QD
     Route: 048
     Dates: start: 20171012, end: 20171020
  48. KALINOR                            /00031402/ [Concomitant]
     Indication: Hypokalaemia
     Dosage: 2 TAB 2 TAB, QD
     Route: 048
     Dates: start: 20171012, end: 20171020
  49. MORPHINE HYDROCHLORIDE [Concomitant]
     Active Substance: MORPHINE HYDROCHLORIDE
     Indication: Product used for unknown indication
     Dosage: 20 MG, UNK
     Route: 048
     Dates: start: 20171215

REACTIONS (3)
  - Atrial fibrillation [Not Recovered/Not Resolved]
  - Pneumonia [Unknown]
  - Bronchitis [Unknown]

NARRATIVE: CASE EVENT DATE: 20170926
